FAERS Safety Report 7671200-2 (Version None)
Quarter: 2011Q3

REPORT INFORMATION
  Report Type: 
  Country: None (occurrence: None)
  Receive Date: 20110808
  Receipt Date: 20110808
  Transmission Date: 20111222
  Serious: Yes (Hospitalization)
  Sender: FDA-Public Use
  Company Number: None

PATIENT
  Age: 68 Year
  Sex: Male
  Weight: 87.0906 kg

DRUGS (13)
  1. DIPHENHYDRAMINE HCL (BENADRYL) [Concomitant]
  2. MULTI-VITAMIN [Concomitant]
  3. VITAMIN E ACETATE [Concomitant]
  4. EVEROLIMUS 10 MG (RAD001) [Suspect]
     Indication: PROSTATE CANCER
     Dosage: 10 MG PO DAILY
     Route: 048
     Dates: start: 20100212
  5. TERAZOSIN HCL [Concomitant]
  6. CASODEX [Suspect]
     Indication: PROSTATE CANCER
     Dosage: 50 MG PO DAILY
     Route: 048
     Dates: start: 20100212
  7. GOSERELIN (ZOLADEX) [Concomitant]
  8. ZOCOR [Concomitant]
  9. DOCUSATE (COLACE) [Concomitant]
  10. EFFEXOR [Concomitant]
  11. ASCORBATE CALCIUM (VITAMIN C ) [Concomitant]
  12. DOCOSAHEXANOIC ACID/EPA (FISH OIL), [Concomitant]
  13. SYNTHROID [Concomitant]

REACTIONS (2)
  - ANAEMIA [None]
  - CYSTITIS RADIATION [None]
